FAERS Safety Report 15662813 (Version 2)
Quarter: 2019Q1

REPORT INFORMATION
  Report Type: Spontaneous
  Country: US (occurrence: US)
  Receive Date: 20181127
  Receipt Date: 20190121
  Transmission Date: 20190417
  Serious: Yes (Other)
  Sender: FDA-Public Use
  Company Number: US-SA-2018SA175107

PATIENT
  Sex: Female

DRUGS (44)
  1. SODIUM CHLORIDE. [Concomitant]
     Active Substance: SODIUM CHLORIDE
     Dosage: SODIUM CHLORIDE 0.9% 1000 ML BAG
     Dates: start: 20111110, end: 20111110
  2. PALONOSETRON. [Concomitant]
     Active Substance: PALONOSETRON HYDROCHLORIDE
     Dosage: 250 MCG/5 ML VIAL
     Dates: start: 20110928, end: 20110928
  3. PALONOSETRON. [Concomitant]
     Active Substance: PALONOSETRON HYDROCHLORIDE
     Dosage: 250 MCG/5 ML VIAL
     Dates: start: 20111019, end: 20111019
  4. PEGFILGRASTIM [Concomitant]
     Active Substance: PEGFILGRASTIM
     Dosage: 6 MG/0.6 ML SYRINGE
     Dates: start: 20111110, end: 20111110
  5. CYTOXAN LYOPHILIZED [Concomitant]
     Active Substance: CYCLOPHOSPHAMIDE
     Dosage: UNK
     Dates: start: 20111019, end: 20111019
  6. TAXOTERE [Suspect]
     Active Substance: DOCETAXEL
     Dosage: 80 MG/2 ML VIAL
     Route: 042
     Dates: start: 20111110, end: 20111110
  7. SODIUM CHLORIDE. [Concomitant]
     Active Substance: SODIUM CHLORIDE
     Dosage: 0.9% 1000 ML BAG
     Dates: start: 20111130, end: 20111130
  8. CYCLOPHOSPHAMIDE. [Concomitant]
     Active Substance: CYCLOPHOSPHAMIDE
     Dosage: UNK
     Route: 042
     Dates: start: 20110928, end: 20110928
  9. PALONOSETRON. [Concomitant]
     Active Substance: PALONOSETRON HYDROCHLORIDE
     Dosage: 250 MCG/5 ML VIAL
     Dates: start: 20111110, end: 20111110
  10. PALONOSETRON. [Concomitant]
     Active Substance: PALONOSETRON HYDROCHLORIDE
     Dosage: 250 MCG/5 ML VIAL
     Dates: start: 20111130, end: 20111130
  11. DEXAMETHASONE SODIUM PHOSPHATE. [Concomitant]
     Active Substance: DEXAMETHASONE SODIUM PHOSPHATE
     Dosage: 10 MG/ML VIAL
     Dates: start: 20110928, end: 20110928
  12. PEGFILGRASTIM [Concomitant]
     Active Substance: PEGFILGRASTIM
     Dosage: 6 MG/0.E ML SYRINGE
     Dates: start: 20111019, end: 20111019
  13. TAXOTERE [Suspect]
     Active Substance: DOCETAXEL
     Dosage: DOCETAXEL 80 MG/2 ML VIAL
     Route: 042
     Dates: start: 20110928, end: 20110928
  14. ALOXI [Concomitant]
     Active Substance: PALONOSETRON HYDROCHLORIDE
     Dosage: UNK
     Dates: start: 20111110, end: 20111110
  15. TAXOTERE [Suspect]
     Active Substance: DOCETAXEL
     Dosage: DCCETAXEL 80 MG/2 ML VIAL
     Route: 042
     Dates: start: 20111019, end: 20111019
  16. ALOXI [Concomitant]
     Active Substance: PALONOSETRON HYDROCHLORIDE
     Dosage: UNK
     Dates: start: 20110928, end: 20110928
  17. PEGFILGRASTIM [Concomitant]
     Active Substance: PEGFILGRASTIM
     Dosage: 6 MG/0.6 ML SYRINGE
     Dates: start: 20111020, end: 20111020
  18. FOSAPREPITANT [Concomitant]
     Active Substance: FOSAPREPITANT
     Dosage: UNK
     Dates: start: 20111019, end: 20111019
  19. GABAPENTIN. [Concomitant]
     Active Substance: GABAPENTIN
     Dosage: FOR 30 DAYS
     Route: 048
     Dates: start: 20111221
  20. GABAPENTIN. [Concomitant]
     Active Substance: GABAPENTIN
     Dosage: 1 DF, TID
     Route: 048
     Dates: start: 20120621
  21. LEVAQUIN [Concomitant]
     Active Substance: LEVOFLOXACIN
     Dosage: 1 DF, QD, 10 DAYS
     Route: 048
     Dates: start: 20120109
  22. TAXOTERE [Suspect]
     Active Substance: DOCETAXEL
     Dosage: 80 MG/2 ML VIAL
     Route: 042
     Dates: start: 20111130, end: 20111130
  23. DEXAMETHASONE SODIUM PHOSPHATE. [Concomitant]
     Active Substance: DEXAMETHASONE SODIUM PHOSPHATE
     Dosage: 10 MG/ML VIAL
     Dates: start: 20111019, end: 20111019
  24. DEXAMETHASONE SODIUM PHOSPHATE. [Concomitant]
     Active Substance: DEXAMETHASONE SODIUM PHOSPHATE
     Dosage: 10 MG/ML VIAL
     Dates: start: 20111110, end: 20111110
  25. DEXAMETHASONE SODIUM PHOSPHATE. [Concomitant]
     Active Substance: DEXAMETHASONE SODIUM PHOSPHATE
     Dosage: DEXAMETHASONE 1 (2 MG) TABLET
     Route: 048
     Dates: start: 20120202
  26. ALOXI [Concomitant]
     Active Substance: PALONOSETRON HYDROCHLORIDE
     Dosage: UNK
     Dates: start: 20111130, end: 20111130
  27. DECADRON [DEXAMETHASONE] [Concomitant]
     Dosage: UNK
     Dates: start: 20110928, end: 20110928
  28. CYTOXAN LYOPHILIZED [Concomitant]
     Active Substance: CYCLOPHOSPHAMIDE
     Dosage: UNK
     Dates: start: 20111110, end: 20111110
  29. SODIUM CHLORIDE. [Concomitant]
     Active Substance: SODIUM CHLORIDE
     Dosage: SODIUM CHLORIDE 0.9% 1000 ML BAG
     Route: 042
     Dates: start: 20110928, end: 20110928
  30. CYCLOPHOSPHAMIDE. [Concomitant]
     Active Substance: CYCLOPHOSPHAMIDE
     Dosage: UNK
     Dates: start: 20111110, end: 20111110
  31. DECADRON [DEXAMETHASONE] [Concomitant]
     Dosage: UNK
     Dates: start: 20111110, end: 20111110
  32. GABAPENTIN. [Concomitant]
     Active Substance: GABAPENTIN
     Dosage: FOR 30 DAYS
     Route: 048
     Dates: start: 20111229
  33. ONDANSETRON [Concomitant]
     Active Substance: ONDANSETRON
     Dosage: 8 MG
     Route: 048
     Dates: start: 20110928, end: 20110928
  34. SODIUM CHLORIDE. [Concomitant]
     Active Substance: SODIUM CHLORIDE
     Dosage: SODIUM CHLORIDE 0.9% 1000 ML BAG`
     Dates: start: 20111019, end: 20111019
  35. DEXAMETHASONE SODIUM PHOSPHATE. [Concomitant]
     Active Substance: DEXAMETHASONE SODIUM PHOSPHATE
     Dosage: 10 MG/ML VIAL
     Dates: start: 20111130, end: 20111130
  36. DECADRON [DEXAMETHASONE] [Concomitant]
     Dosage: UNK
     Dates: start: 20111130, end: 20111130
  37. FOSAPREPITANT [Concomitant]
     Active Substance: FOSAPREPITANT
     Dosage: 150 MG VIAL
     Dates: start: 20111110, end: 20111110
  38. TAXOTERE [Suspect]
     Active Substance: DOCETAXEL
     Dosage: UNK UNK, UNK
     Route: 042
     Dates: start: 201112, end: 201112
  39. CYCLOPHOSPHAMIDE. [Concomitant]
     Active Substance: CYCLOPHOSPHAMIDE
     Dosage: UNK
     Dates: start: 20111019, end: 20111019
  40. CYCLOPHOSPHAMIDE. [Concomitant]
     Active Substance: CYCLOPHOSPHAMIDE
     Dosage: UNK
     Dates: start: 20111130, end: 20111130
  41. ALOXI [Concomitant]
     Active Substance: PALONOSETRON HYDROCHLORIDE
     Dosage: UNK
     Dates: start: 20111019, end: 20111019
  42. DECADRON [DEXAMETHASONE] [Concomitant]
     Dosage: UNK
     Dates: start: 20111019, end: 20111019
  43. PEGFILGRASTIM [Concomitant]
     Active Substance: PEGFILGRASTIM
     Dosage: 6 MG/0.6 ML SYRINGE
     Route: 058
     Dates: start: 20110928, end: 20110928
  44. FOSAPREPITANT [Concomitant]
     Active Substance: FOSAPREPITANT
     Dosage: 150 MG VIAL
     Dates: start: 20111130, end: 20111130

REACTIONS (1)
  - Alopecia [Not Recovered/Not Resolved]
